FAERS Safety Report 7305436-7 (Version None)
Quarter: 2011Q1

REPORT INFORMATION
  Report Type: 
  Country: None (occurrence: None)
  Receive Date: 20110222
  Receipt Date: 20110217
  Transmission Date: 20110831
  Serious: Yes (Hospitalization)
  Sender: FDA-Public Use
  Company Number: US-PFIZER INC-2011035775

PATIENT
  Sex: Female
  Weight: 78 kg

DRUGS (4)
  1. ZOLOFT [Suspect]
     Dosage: 100 MG, DAILY
     Route: 048
     Dates: end: 20100501
  2. ZOLOFT [Suspect]
     Indication: DEPRESSION
     Dosage: 50 MG, 1X/DAY
     Route: 048
     Dates: start: 20020101
  3. XANAX [Concomitant]
     Indication: EMOTIONAL DISORDER
     Dosage: UNK
  4. SEROQUEL [Concomitant]
     Indication: EMOTIONAL DISORDER
     Dosage: UNK

REACTIONS (4)
  - PULMONARY THROMBOSIS [None]
  - CARDIAC DISORDER [None]
  - THROMBOSIS [None]
  - MYOCARDIAL INFARCTION [None]
